FAERS Safety Report 8016721 (Version 2)
Quarter: 2013Q2

REPORT INFORMATION
  Report Type: Report from Study
  Country: US (occurrence: US)
  Receive Date: 20110630
  Receipt Date: 20130604
  Transmission Date: 20140414
  Serious: Yes (Hospitalization)
  Sender: FDA-Public Use
  Company Number: US-ACTELION-A-NJ2011-50619

PATIENT
  Age: 27 Year
  Sex: Female

DRUGS (2)
  1. TRACLEER [Suspect]
     Indication: PULMONARY ARTERIAL HYPERTENSION
     Dosage: 125 MG, BID
     Route: 048
     Dates: start: 20110318
  2. ADCIRCA [Concomitant]

REACTIONS (3)
  - Foot fracture [Not Recovered/Not Resolved]
  - Loss of consciousness [Unknown]
  - Sickle cell anaemia [Unknown]
